FAERS Safety Report 6154640-2 (Version None)
Quarter: 2009Q2

REPORT INFORMATION
  Report Type: 
  Country: None (occurrence: None)
  Receive Date: 20090414
  Receipt Date: 20090406
  Transmission Date: 20091009
  Serious: Yes (Other)
  Sender: FDA-Public Use
  Company Number: US-ELI_LILLY_AND_COMPANY-US200904001385

PATIENT
  Sex: Female

DRUGS (3)
  1. HUMATROPE [Suspect]
     Indication: HYPOPITUITARISM
     Dosage: 0.6 MG, DAILY (1/D) 6 CLICKS
     Dates: start: 19850101, end: 20090402
  2. NOVOLOG [Concomitant]
     Dosage: UNK, UNKNOWN
  3. NOVOLOG MIX 70/30 [Concomitant]
     Dosage: UNK, UNKNOWN

REACTIONS (5)
  - ABASIA [None]
  - ACTIVITIES OF DAILY LIVING IMPAIRED [None]
  - ASTHENIA [None]
  - BLOOD GLUCOSE DECREASED [None]
  - WEIGHT INCREASED [None]
